FAERS Safety Report 11432929 (Version 9)
Quarter: 2017Q3

REPORT INFORMATION
  Report Type: Report from Study
  Country: US (occurrence: US)
  Receive Date: 20150828
  Receipt Date: 20170822
  Transmission Date: 20171127
  Serious: No
  Sender: FDA-Public Use
  Company Number: PHHY2015US097755

PATIENT
  Age: 56 Year
  Sex: Female

DRUGS (4)
  1. DULOXETINE. [Concomitant]
     Active Substance: DULOXETINE
     Indication: PAIN
  2. GILENYA [Suspect]
     Active Substance: FINGOLIMOD HYDROCHLORIDE
     Indication: MULTIPLE SCLEROSIS
     Dosage: QD
     Route: 048
  3. DULOXETINE. [Concomitant]
     Active Substance: DULOXETINE
     Indication: DEPRESSION
     Route: 065
     Dates: start: 20150427, end: 20150514
  4. OXYBUTIN [Concomitant]
     Active Substance: OXYBUTYNIN
     Indication: POLLAKIURIA
     Dosage: UNK
     Route: 065
     Dates: start: 20170324

REACTIONS (27)
  - Lymphopenia [Unknown]
  - Decreased appetite [Recovered/Resolved]
  - Neuralgia [Unknown]
  - Tinnitus [Unknown]
  - Fatigue [Unknown]
  - Muscle tightness [Unknown]
  - Nausea [Recovered/Resolved]
  - Sinusitis [Recovered/Resolved]
  - Urinary hesitation [Recovered/Resolved]
  - Muscular weakness [Unknown]
  - Nasal congestion [Recovered/Resolved]
  - Fall [Recovered/Resolved]
  - Vertigo [Unknown]
  - Sensory disturbance [Recovered/Resolved]
  - Micturition urgency [Recovered/Resolved]
  - Upper respiratory tract infection [Unknown]
  - Influenza [Recovered/Resolved]
  - Hot flush [Recovered/Resolved]
  - Balance disorder [Unknown]
  - Irritability [Recovered/Resolved]
  - Weight decreased [Recovered/Resolved]
  - Headache [Recovered/Resolved]
  - Cough [Recovered/Resolved]
  - Skin discolouration [Recovered/Resolved]
  - Neurofibroma [Recovered/Resolved]
  - Dysphagia [Recovered/Resolved]
  - Fatigue [Recovered/Resolved]

NARRATIVE: CASE EVENT DATE: 20150427
